FAERS Safety Report 15320967 (Version 1)
Quarter: 2018Q3

REPORT INFORMATION
  Report Type: Spontaneous
  Country: US (occurrence: US)
  Receive Date: 20180827
  Receipt Date: 20180827
  Transmission Date: 20181010
  Serious: No
  Sender: FDA-Public Use
  Company Number: US-SA-2018SA225755

PATIENT
  Age: 56 Year
  Sex: Male

DRUGS (2)
  1. AVAPRO [Suspect]
     Active Substance: IRBESARTAN
     Dosage: 75 MG, QD
     Dates: start: 20180807, end: 20180810
  2. ULORIC [Concomitant]
     Active Substance: FEBUXOSTAT
     Dosage: UNK UNK, UNK

REACTIONS (4)
  - Hypersensitivity [Unknown]
  - Urticaria [Unknown]
  - Pruritus [Unknown]
  - Lip swelling [Unknown]

NARRATIVE: CASE EVENT DATE: 20180811
